FAERS Safety Report 21328933 (Version 1)
Quarter: 2022Q3

REPORT INFORMATION
  Report Type: Spontaneous
  Country: FR (occurrence: FR)
  Receive Date: 20220913
  Receipt Date: 20220913
  Transmission Date: 20221027
  Serious: Yes (Other)
  Sender: FDA-Public Use
  Company Number: None

PATIENT
  Age: 48 Year
  Sex: Female
  Weight: 88 kg

DRUGS (2)
  1. TOLVAPTAN [Suspect]
     Active Substance: TOLVAPTAN
     Indication: Polycystic liver disease
     Dosage: 90 MG, QD
     Route: 048
     Dates: start: 20211027, end: 20220802
  2. TOLVAPTAN [Suspect]
     Active Substance: TOLVAPTAN
     Dosage: 30 MG, QD
     Route: 002
     Dates: start: 20211027, end: 20220802

REACTIONS (1)
  - Hepatic cytolysis [Unknown]

NARRATIVE: CASE EVENT DATE: 20220601
